FAERS Safety Report 6091026-3 (Version None)
Quarter: 2009Q1

REPORT INFORMATION
  Report Type: 
  Country: None (occurrence: None)
  Receive Date: 20090225
  Receipt Date: 20090212
  Transmission Date: 20090719
  Serious: Yes (Other)
  Sender: FDA-Public Use
  Company Number: PHEH2008US10083

PATIENT
  Sex: Female

DRUGS (6)
  1. RECLAST [Suspect]
     Indication: OSTEOPOROSIS
     Dosage: 5 MG, ONCE/SINGLE
     Route: 042
     Dates: start: 20081105
  2. IMURAN [Concomitant]
     Indication: POLYMYOSITIS
     Dosage: 50 MG, QD
     Route: 048
  3. RITUXAN [Concomitant]
     Indication: POLYMYOSITIS
     Dosage: 1000 MG, Q6 MONTHS
     Route: 042
  4. AMBIEN [Concomitant]
     Dosage: 10 MG, QHS, PRN
     Route: 048
  5. NEXIUM [Concomitant]
     Indication: GASTROOESOPHAGEAL REFLUX DISEASE
     Dosage: 40 MG, QD
     Route: 048
  6. SINGULAIR [Concomitant]
     Indication: ASTHMA
     Dosage: 10 MG, QD
     Route: 048

REACTIONS (8)
  - ARTHRALGIA [None]
  - BONE PAIN [None]
  - FALL [None]
  - HYPOAESTHESIA [None]
  - MUSCLE SPASMS [None]
  - MYALGIA [None]
  - PARAESTHESIA [None]
  - PYREXIA [None]
